FAERS Safety Report 25716584 (Version 5)
Quarter: 2025Q4

REPORT INFORMATION
  Report Type: Report from Study
  Country: EU (occurrence: EU)
  Receive Date: 20250822
  Receipt Date: 20251105
  Transmission Date: 20260118
  Serious: Yes (Other)
  Sender: JOHNSON AND JOHNSON
  Company Number: EU-JNJFOC-20250816522

PATIENT
  Age: 89 Year
  Sex: Female

DRUGS (3)
  1. TECLISTAMAB [Suspect]
     Active Substance: TECLISTAMAB
     Indication: Plasma cell myeloma
     Dosage: DATE OF LAST ADMINISTRATION : 13-MAY-2023
     Route: 065
     Dates: start: 20230513
  2. TECLISTAMAB [Suspect]
     Active Substance: TECLISTAMAB
     Dosage: DATE OF LAST ADMINISTRATION : 15-MAY-2023
     Route: 065
     Dates: start: 20230515
  3. TECLISTAMAB [Suspect]
     Active Substance: TECLISTAMAB
     Dosage: DATE OF LAST ADMINISTRATION : 11-MAY-2023
     Route: 065
     Dates: start: 20230511

REACTIONS (35)
  - Hypokalaemia [Recovered/Resolved]
  - Syncope [Recovered/Resolved]
  - Acute kidney injury [Recovered/Resolved]
  - White blood cell count decreased [Not Recovered/Not Resolved]
  - Hypertension [Recovered/Resolved]
  - Anaemia [Recovered/Resolved]
  - Hyponatraemia [Recovered/Resolved]
  - Serum ferritin increased [Not Recovered/Not Resolved]
  - Gamma-glutamyltransferase increased [Not Recovered/Not Resolved]
  - Platelet count decreased [Not Recovered/Not Resolved]
  - C-reactive protein increased [Not Recovered/Not Resolved]
  - Osteoarthritis [Not Recovered/Not Resolved]
  - Blood uric acid decreased [Recovered/Resolved]
  - Haematuria [Recovered/Resolved]
  - Oedema peripheral [Not Recovered/Not Resolved]
  - Hypotension [Not Recovered/Not Resolved]
  - Vertigo [Recovered/Resolved]
  - Gastrointestinal infection [Recovered/Resolved]
  - Asthenia [Recovered/Resolved]
  - Escherichia urinary tract infection [Recovered/Resolved]
  - Blood creatinine increased [Recovered/Resolved]
  - Neutrophil count decreased [Not Recovered/Not Resolved]
  - Pyrexia [Recovered/Resolved]
  - Immunoglobulins decreased [Not Recovered/Not Resolved]
  - Pain in extremity [Not Recovered/Not Resolved]
  - Oedema peripheral [Not Recovered/Not Resolved]
  - Arthralgia [Not Recovered/Not Resolved]
  - Arthralgia [Not Recovered/Not Resolved]
  - Nausea [Recovered/Resolved]
  - Dysaesthesia [Not Recovered/Not Resolved]
  - Fall [Recovered/Resolved]
  - Cystocele [Not Recovered/Not Resolved]
  - Aphthous ulcer [Recovered/Resolved]
  - Influenza like illness [Recovered/Resolved]
  - Fatigue [Not Recovered/Not Resolved]

NARRATIVE: CASE EVENT DATE: 20230511
